FAERS Safety Report 9603099 (Version 1)
Quarter: 2013Q4

REPORT INFORMATION
  Report Type: Spontaneous
  Country: GB (occurrence: GB)
  Receive Date: 20131007
  Receipt Date: 20131007
  Transmission Date: 20140711
  Serious: Yes (Other)
  Sender: FDA-Public Use
  Company Number: GB-GLAXOSMITHKLINE-B0925876A

PATIENT
  Age: 65 Year
  Sex: Male
  Weight: 101 kg

DRUGS (8)
  1. SERETIDE [Suspect]
     Indication: ASTHMA
     Route: 055
     Dates: start: 2006, end: 201307
  2. VENTOLIN [Concomitant]
  3. SIMVASTATIN [Concomitant]
  4. BISOPROLOL [Concomitant]
  5. LOSARTAN [Concomitant]
  6. CALCICHEW D3 [Concomitant]
  7. LERCANIDIPINE [Concomitant]
  8. CLENIL MODULITE [Concomitant]

REACTIONS (2)
  - Pemphigoid [Recovering/Resolving]
  - Rhinitis [Unknown]
